FAERS Safety Report 5253099-7 (Version None)
Quarter: 2007Q1

REPORT INFORMATION
  Report Type: 
  Country: None (occurrence: None)
  Receive Date: 20070301
  Receipt Date: 20070220
  Transmission Date: 20070707
  Serious: Yes (Other)
  Sender: FDA-Public Use
  Company Number: DE-BRISTOL-MYERS SQUIBB COMPANY-13690714

PATIENT
  Age: 57 Year
  Sex: Female

DRUGS (6)
  1. PACLITAXEL [Suspect]
     Indication: BREAST CANCER
     Dates: start: 20040101
  2. CYCLOPHOSPHAMIDE [Suspect]
     Indication: BREAST CANCER
     Dates: start: 20040101
  3. METHOTREXATE [Suspect]
     Indication: BREAST CANCER
     Dates: start: 20040101
  4. FLUOROURACIL [Suspect]
     Indication: BREAST CANCER
  5. EPIRUBICIN [Suspect]
     Indication: BREAST CANCER
     Dates: start: 20040101
  6. DARBEPOETIN ALFA [Suspect]
     Indication: BREAST CANCER

REACTIONS (1)
  - CARDIOMYOPATHY [None]
